FAERS Safety Report 7603059-3 (Version None)
Quarter: 2011Q3

REPORT INFORMATION
  Report Type: 
  Country: None (occurrence: None)
  Receive Date: 20110712
  Receipt Date: 20110706
  Transmission Date: 20111222
  Serious: Yes (Death, Hospitalization)
  Sender: FDA-Public Use
  Company Number: AU-GENZYME-FLUD-1000973

PATIENT
  Age: 67 Year
  Sex: Male

DRUGS (18)
  1. FLUDARA [Suspect]
     Indication: B-CELL LYMPHOMA
     Dosage: UNK
     Route: 065
  2. CYCLOPHOSPHAMIDE [Suspect]
     Indication: B-CELL LYMPHOMA
     Dosage: UNK
     Route: 065
  3. RITUXIMAB [Suspect]
     Dosage: 375 MG/M2 EVERY 3 MONTHS
     Route: 065
  4. FLUDARA [Suspect]
     Dosage: UNK
     Route: 065
  5. FLUDARA [Suspect]
     Dosage: UNK
     Route: 065
  6. RITUXIMAB [Suspect]
     Dosage: 375 MG/M2 EVERY 3 MONTHS
     Route: 065
  7. RITUXIMAB [Suspect]
     Dosage: UNK
     Route: 065
  8. CYCLOPHOSPHAMIDE [Suspect]
     Dosage: UNK
     Route: 065
  9. RITUXIMAB [Suspect]
     Dosage: UNK
     Route: 065
  10. FLUDARA [Suspect]
     Dosage: UNK
     Route: 065
  11. RITUXIMAB [Suspect]
     Dosage: UNK
     Route: 065
  12. RITUXIMAB [Suspect]
     Dosage: 375 MG/M2 EVERY 3 MONTHS
     Route: 065
  13. CYCLOPHOSPHAMIDE [Suspect]
     Dosage: UNK
     Route: 065
  14. CYCLOPHOSPHAMIDE [Suspect]
     Dosage: UNK
     Route: 065
  15. RITUXIMAB [Suspect]
     Dosage: 375 MG/M2 EVERY 3 MONTHS
     Route: 065
  16. RITUXIMAB [Suspect]
     Indication: B-CELL LYMPHOMA
     Dosage: UNK
     Route: 065
  17. RITUXIMAB [Suspect]
     Dosage: 375 MG/M2 EVERY 3 MONTHS
     Route: 065
  18. RITUXIMAB [Suspect]
     Dosage: 375 MG/M2 EVERY 3 MONTHS
     Route: 065

REACTIONS (2)
  - ENTEROCOLITIS [None]
  - PNEUMONIA BACTERIAL [None]
